FAERS Safety Report 5357570-9 (Version None)
Quarter: 2007Q2

REPORT INFORMATION
  Report Type: 
  Country: None (occurrence: None)
  Receive Date: 20070530
  Receipt Date: 20070105
  Transmission Date: 20071010
  Serious: Yes (Other)
  Sender: FDA-Public Use
  Company Number: USA040464202

PATIENT
  Age: 58 Year
  Sex: Male
  Weight: 82.3 kg

DRUGS (18)
  1. ZYPREXA [Suspect]
     Indication: BIPOLAR I DISORDER
     Dosage: 10 MG
     Dates: start: 20010305
  2. PROZAC [Suspect]
     Dosage: ORAL
     Route: 048
     Dates: end: 19960101
  3. HUMULIN N [Suspect]
     Indication: DIABETES MELLITUS
     Dosage: 48 U, DAILY (1/D), SUBCUTANEOUS
     Route: 058
     Dates: start: 20030701
  4. LANOXIN [Concomitant]
  5. SYNTHROID [Concomitant]
  6. PAXIL [Concomitant]
  7. METFORMIN (METFORMIN) [Concomitant]
  8. AMARYL [Concomitant]
  9. WELLBUTRIN [Concomitant]
  10. ASPIRIN [Concomitant]
  11. XANAX [Concomitant]
  12. RISPERIDONE [Concomitant]
  13. AVANDIA [Concomitant]
  14. XANAX [Concomitant]
  15. PREVACID [Concomitant]
  16. LANTUS [Concomitant]
  17. ZOLOFT [Concomitant]
  18. NAVANE (TIOTIXETINE) [Concomitant]

REACTIONS (5)
  - BLOOD GLUCOSE [None]
  - BLOOD TRIGLYCERIDES INCREASED [None]
  - DIABETES MELLITUS [None]
  - DRUG WITHDRAWAL SYNDROME [None]
  - PANIC REACTION [None]
